FAERS Safety Report 6431899-5 (Version None)
Quarter: 2009Q4

REPORT INFORMATION
  Report Type: 
  Country: None (occurrence: None)
  Receive Date: 20091109
  Receipt Date: 20091102
  Transmission Date: 20100525
  Serious: Yes (Hospitalization)
  Sender: FDA-Public Use
  Company Number: US-BIOGENIDEC-2009BI032443

PATIENT
  Age: 35 Year
  Sex: Female

DRUGS (6)
  1. TYSABRI [Suspect]
     Indication: MULTIPLE SCLEROSIS
     Route: 042
     Dates: start: 20090522, end: 20090717
  2. TYSABRI [Suspect]
     Route: 042
     Dates: start: 20080620, end: 20090129
  3. NAPROXEN [Concomitant]
  4. ^AMICTAL^ [Concomitant]
  5. CELEXA [Concomitant]
  6. OXYCONTIN [Concomitant]

REACTIONS (4)
  - BRONCHITIS [None]
  - INFECTION [None]
  - OTITIS MEDIA [None]
  - VITAMIN D DEFICIENCY [None]
